FAERS Safety Report 4509483-X (Version None)
Quarter: 2004Q4

REPORT INFORMATION
  Report Type: 
  Country: None (occurrence: None)
  Receive Date: 20041119
  Receipt Date: 20041101
  Transmission Date: 20050328
  Serious: No
  Sender: FDA-Public Use
  Company Number: USA040773003

PATIENT
  Sex: Female

DRUGS (3)
  1. EVISTA [Suspect]
     Dates: start: 20030101
  2. PROCRIT [Concomitant]
  3. PREDNISONE [Concomitant]

REACTIONS (2)
  - SCOLIOSIS [None]
  - SPINAL DISORDER [None]
